FAERS Safety Report 5303302-X (Version None)
Quarter: 2007Q2

REPORT INFORMATION
  Report Type: 
  Country: None (occurrence: None)
  Receive Date: 20070420
  Receipt Date: 20070413
  Transmission Date: 20071010
  Serious: Yes (Hospitalization)
  Sender: FDA-Public Use
  Company Number: JP-GLAXOSMITHKLINE-B0464942A

PATIENT
  Age: 9 Year
  Sex: Male
  Weight: 29 kg

DRUGS (4)
  1. RELENZA [Suspect]
     Indication: INFLUENZA
     Dosage: 10MG TWICE PER DAY
     Route: 055
     Dates: start: 20070326, end: 20070328
  2. HOKUNALIN [Concomitant]
     Indication: ASTHMA
     Dosage: 1.5G PER DAY
     Route: 048
     Dates: start: 20070326
  3. MUCODYNE [Concomitant]
     Indication: ASTHMA
     Route: 048
     Dates: start: 20070326
  4. UNKNOWN MEDICATION [Concomitant]
     Indication: ASTHMA
     Route: 048
     Dates: start: 20070326

REACTIONS (5)
  - DEPRESSED LEVEL OF CONSCIOUSNESS [None]
  - FEELING HOT [None]
  - HOT FLUSH [None]
  - HYPOTHERMIA [None]
  - PAIN [None]
